FAERS Safety Report 8288118 (Version 3)
Quarter: 2015Q3

REPORT INFORMATION
  Report Type: Spontaneous
  Country: US (occurrence: US)
  Receive Date: 20111213
  Receipt Date: 20150724
  Transmission Date: 20151125
  Serious: Yes (Hospitalization, Other)
  Sender: FDA-Public Use
  Company Number: US-AMGEN-USASP2011052563

PATIENT
  Age: 55 Year
  Sex: Female

DRUGS (1)
  1. ENBREL [Suspect]
     Active Substance: ETANERCEPT
     Indication: PSORIASIS
     Dosage: UNK UNK, Q2WK
     Route: 058
     Dates: start: 20110527

REACTIONS (23)
  - Localised infection [Recovered/Resolved]
  - Oedema peripheral [Not Recovered/Not Resolved]
  - Impaired healing [Not Recovered/Not Resolved]
  - Musculoskeletal stiffness [Not Recovered/Not Resolved]
  - Psoriasis [Not Recovered/Not Resolved]
  - Post procedural complication [Not Recovered/Not Resolved]
  - Joint stiffness [Not Recovered/Not Resolved]
  - Frustration [Unknown]
  - Cartilage atrophy [Not Recovered/Not Resolved]
  - Fall [Unknown]
  - Back pain [Not Recovered/Not Resolved]
  - Arthropathy [Unknown]
  - Arthritis [Unknown]
  - Pruritus [Unknown]
  - Osteoarthritis [Not Recovered/Not Resolved]
  - Joint injury [Unknown]
  - Gait disturbance [Unknown]
  - Toe amputation [Unknown]
  - Walking aid user [Unknown]
  - Diabetes mellitus [Not Recovered/Not Resolved]
  - Drug ineffective [Not Recovered/Not Resolved]
  - Neuropathy peripheral [Not Recovered/Not Resolved]
  - Skin ulcer [Not Recovered/Not Resolved]

NARRATIVE: CASE EVENT DATE: 2011
